FAERS Safety Report 19972667 (Version 3)
Quarter: 2022Q1

REPORT INFORMATION
  Report Type: Spontaneous
  Country: JP (occurrence: JP)
  Receive Date: 20211019
  Receipt Date: 20220118
  Transmission Date: 20220423
  Serious: Yes (Death, Other)
  Sender: FDA-Public Use
  Company Number: JP-JAZZ-2021-JP-019398

PATIENT
  Age: 68 Year
  Sex: Male
  Weight: 72.4 kg

DRUGS (6)
  1. DEFITELIO [Suspect]
     Active Substance: DEFIBROTIDE SODIUM
     Indication: Venoocclusive liver disease
     Dosage: 12.5 MILLIGRAM/KILOGRAM/12 HOURS
     Route: 042
     Dates: start: 20210814, end: 20210814
  2. DEFITELIO [Suspect]
     Active Substance: DEFIBROTIDE SODIUM
     Indication: Venoocclusive liver disease
     Dosage: 25 MILLIGRAM/KILOGRAM/6 HOURS
     Route: 042
     Dates: start: 20210815, end: 20210816
  3. DEFITELIO [Suspect]
     Active Substance: DEFIBROTIDE SODIUM
     Dosage: 18.75 MILLIGRAM/KILOGRAM/8 HOURS
     Route: 042
     Dates: start: 20210817, end: 20210818
  4. DEFITELIO [Suspect]
     Active Substance: DEFIBROTIDE SODIUM
     Dosage: 25 MILLIGRAM/KILOGRAM/6 HOURS
     Route: 042
     Dates: start: 20210819, end: 20210825
  5. DEFITELIO [Suspect]
     Active Substance: DEFIBROTIDE SODIUM
     Dosage: 12.5 MILLIGRAM/KILOGRAM/12 HOURS
     Route: 042
     Dates: start: 20210826, end: 20210826
  6. DEFITELIO [Suspect]
     Active Substance: DEFIBROTIDE SODIUM
     Dosage: 25 MILLIGRAM/KILOGRAM/6 HOURS
     Route: 042
     Dates: start: 20210827, end: 20210827

REACTIONS (6)
  - Acute kidney injury [Fatal]
  - Hypotension [Fatal]
  - Respiratory failure [Fatal]
  - Pneumonia [Fatal]
  - Renal failure [Unknown]
  - Off label use [Unknown]

NARRATIVE: CASE EVENT DATE: 20210814
